FAERS Safety Report 6023942-2 (Version None)
Quarter: 2008Q4

REPORT INFORMATION
  Report Type: 
  Country: None (occurrence: None)
  Receive Date: 20081222
  Receipt Date: 20081113
  Transmission Date: 20090506
  Serious: No
  Sender: FDA-Public Use
  Company Number: ALL1-2008-03320

PATIENT
  Age: 33 Year
  Sex: Female
  Weight: 59 kg

DRUGS (3)
  1. VYVANSE [Suspect]
     Indication: ATTENTION DEFICIT/HYPERACTIVITY DISORDER
     Dosage: 70 MG, 1X/DAY:QD, ORAL ; 60 MG, 1X/DAY:QD, ORAL
     Route: 047
     Dates: start: 20070101, end: 20081001
  2. VYVANSE [Suspect]
     Indication: ATTENTION DEFICIT/HYPERACTIVITY DISORDER
     Dosage: 70 MG, 1X/DAY:QD, ORAL ; 60 MG, 1X/DAY:QD, ORAL
     Route: 047
     Dates: start: 20081001
  3. ESTRASORB [Concomitant]

REACTIONS (1)
  - TIC [None]
